FAERS Safety Report 6480756-7 (Version None)
Quarter: 2009Q4

REPORT INFORMATION
  Report Type: 
  Country: None (occurrence: None)
  Receive Date: 20091123
  Receipt Date: 20090731
  Transmission Date: 20100525
  Serious: Yes (Hospitalization)
  Sender: FDA-Public Use
  Company Number: 8044490

PATIENT
  Age: 62 Year
  Sex: Female
  Weight: 112.9 kg

DRUGS (1)
  1. CIMZIA [Suspect]
     Indication: CROHN'S DISEASE
     Dosage: 400 MG SC
     Route: 058
     Dates: start: 20080601, end: 20090319

REACTIONS (3)
  - CROHN'S DISEASE [None]
  - FUNGAL INFECTION [None]
  - RASH [None]
